FAERS Safety Report 6429843-X (Version None)
Quarter: 2009Q4

REPORT INFORMATION
  Report Type: 
  Country: None (occurrence: None)
  Receive Date: 20091106
  Receipt Date: 20091026
  Transmission Date: 20100525
  Serious: Yes (Other)
  Sender: FDA-Public Use
  Company Number: SE-WYE-G03860909

PATIENT
  Sex: Female

DRUGS (5)
  1. EFFEXOR [Suspect]
     Indication: DEPRESSION
     Dosage: 300 MG DAILY
     Route: 048
     Dates: start: 20020401, end: 20040101
  2. EFFEXOR [Suspect]
     Dosage: 150 MG DAILY
     Route: 048
     Dates: start: 20040101, end: 20060101
  3. EFFEXOR [Suspect]
     Dosage: 150 MG DAILY
     Dates: start: 20060101, end: 20070101
  4. EFFEXOR [Suspect]
     Dosage: 75 MG DAILY
     Route: 048
     Dates: start: 20070101, end: 20081001
  5. EFFEXOR [Suspect]
     Dosage: 75 MG DAILY
     Route: 048
     Dates: start: 20090301

REACTIONS (4)
  - DRUG EXPOSURE DURING PREGNANCY [None]
  - DYSPNOEA [None]
  - PRE-ECLAMPSIA [None]
  - TREMOR [None]
